FAERS Safety Report 8536009 (Version 3)
Quarter: 2012Q4

REPORT INFORMATION
  Report Type: 
  Country: DE (occurrence: DE)
  Receive Date: 20120430
  Receipt Date: 20120830
  Transmission Date: 20130627
  Serious: Yes (Life-Threatening, Hospitalization, Other)
  Sender: FDA-Public Use
  Company Number: DE-ELI_LILLY_AND_COMPANY-DE201204008151

PATIENT
  Age: 55 Year
  Sex: Female

DRUGS (12)
  1. ALIMTA [Suspect]
     Indication: BRONCHIAL CARCINOMA
     Dosage: 500 mg/m2, UNK
     Route: 042
     Dates: start: 20120229
  2. CISPLATIN [Concomitant]
     Indication: BRONCHIAL CARCINOMA
     Dosage: 75 mg/m2, UNK
     Dates: start: 20120229
  3. NOVALGIN [Concomitant]
  4. FOLIC ACID [Concomitant]
  5. VITAMIN B12 [Concomitant]
  6. DECORTIN [Concomitant]
  7. RANITIC [Concomitant]
  8. ALLOPURINOL [Concomitant]
     Dosage: UNK
     Dates: start: 201202
  9. APREPITANT [Concomitant]
  10. ONDANSETRON [Concomitant]
  11. OPIOIDS [Concomitant]
  12. DEXAMETHASON [Concomitant]
     Dosage: UNK
     Dates: start: 20120229

REACTIONS (10)
  - Paraneoplastic syndrome [Recovered/Resolved]
  - Stomatitis [Unknown]
  - Anaemia [Recovering/Resolving]
  - Granulocytopenia [Recovered/Resolved]
  - Thrombocytopenia [Recovering/Resolving]
  - Febrile neutropenia [Unknown]
  - Diarrhoea [Unknown]
  - Thrombocytopenia [Not Recovered/Not Resolved]
  - Neoplasm progression [Unknown]
  - Mouth haemorrhage [Unknown]
